FAERS Safety Report 5806204-5 (Version None)
Quarter: 2008Q3

REPORT INFORMATION
  Report Type: 
  Country: None (occurrence: None)
  Receive Date: 20080709
  Receipt Date: 20080709
  Transmission Date: 20090109
  Serious: Yes (Disabling)
  Sender: FDA-Public Use
  Company Number: None

PATIENT
  Sex: Male

DRUGS (5)
  1. MARCAINE [Suspect]
     Indication: JOINT CONTRACTURE
     Dosage: 4ML/HR+ HR BOLUS 014
     Dates: start: 20050701
  2. MARCAINE [Suspect]
     Indication: JOINT DISLOCATION
     Dosage: 4ML/HR+ HR BOLUS 014
     Dates: start: 20050701
  3. MARCAINE HYDROCHLORIDE W/ EPINEPHRINE [Suspect]
     Indication: PERIARTHRITIS
     Dosage: 2CC/ HR X 50 HRS
     Dates: start: 20060719, end: 20060721
  4. STRYKER PAIN PUMP [Concomitant]
  5. I-FLOW PAINBUSTER PAIN PUMP [Concomitant]

REACTIONS (2)
  - JOINT CONTRACTURE [None]
  - PERIARTHRITIS [None]
